FAERS Safety Report 11646215 (Version 4)
Quarter: 2017Q2

REPORT INFORMATION
  Report Type: Spontaneous
  Country: US (occurrence: US)
  Receive Date: 20151020
  Receipt Date: 20170501
  Transmission Date: 20170829
  Serious: No
  Sender: FDA-Public Use
  Company Number: US-ROCHE-1617350

PATIENT
  Age: 76 Year
  Sex: Male

DRUGS (8)
  1. ESBRIET [Suspect]
     Active Substance: PIRFENIDONE
     Indication: IDIOPATHIC PULMONARY FIBROSIS
     Route: 048
     Dates: start: 20150803
  2. ESBRIET [Suspect]
     Active Substance: PIRFENIDONE
     Dosage: 3 CAPSULES 3 TIMES DAILY
     Route: 048
     Dates: start: 20150804
  3. AMLODIPINE [Concomitant]
     Active Substance: AMLODIPINE BESYLATE
     Route: 065
  4. PRILOSEC [Concomitant]
     Active Substance: OMEPRAZOLE MAGNESIUM
     Route: 065
  5. XARELTO [Concomitant]
     Active Substance: RIVAROXABAN
     Route: 065
  6. DIOVAN [Concomitant]
     Active Substance: VALSARTAN
     Route: 065
  7. ZANTAC [Concomitant]
     Active Substance: RANITIDINE HYDROCHLORIDE
  8. MUCINEX [Concomitant]
     Active Substance: GUAIFENESIN

REACTIONS (7)
  - Paranasal sinus hypersecretion [Unknown]
  - Dyspepsia [Unknown]
  - Diarrhoea [Unknown]
  - Dizziness [Unknown]
  - Thinking abnormal [Unknown]
  - Pulmonary congestion [Unknown]
  - Constipation [Unknown]
